FAERS Safety Report 6214719-3 (Version None)
Quarter: 2009Q2

REPORT INFORMATION
  Report Type: 
  Country: None (occurrence: None)
  Receive Date: 20090604
  Receipt Date: 20090526
  Transmission Date: 20091009
  Serious: Yes (Hospitalization)
  Sender: FDA-Public Use
  Company Number: A0775936A

PATIENT
  Age: 71 Year
  Sex: Male

DRUGS (4)
  1. AVANDIA [Suspect]
     Indication: DRUG USE FOR UNKNOWN INDICATION
     Route: 048
     Dates: start: 20020201, end: 20070401
  2. NORVASC [Concomitant]
  3. LOPID [Concomitant]
  4. ALLOPURINOL [Concomitant]

REACTIONS (4)
  - ATRIOVENTRICULAR BLOCK [None]
  - MYOCARDIAL INFARCTION [None]
  - MYOCARDIAL ISCHAEMIA [None]
  - SYNCOPE [None]
